FAERS Safety Report 24630703 (Version 2)
Quarter: 2024Q4

REPORT INFORMATION
  Report Type: Spontaneous
  Country: US (occurrence: US)
  Receive Date: 20241118
  Receipt Date: 20241201
  Transmission Date: 20250114
  Serious: Yes (Other)
  Sender: BAYER HEALTHCARE PHARMACEUTICALS INC.
  Company Number: US-BAYER-2024A162051

PATIENT
  Age: 41 Year
  Sex: Female

DRUGS (1)
  1. MIRENA [Suspect]
     Active Substance: LEVONORGESTREL
     Dosage: 20?G/DAY
     Route: 015
     Dates: start: 20241112, end: 20241112

REACTIONS (4)
  - Embedded device [Recovered/Resolved]
  - Device deployment issue [None]
  - Complication of device insertion [None]
  - Uterine cervix stenosis [None]

NARRATIVE: CASE EVENT DATE: 20241112
